FAERS Safety Report 22355176 (Version 1)
Quarter: 2023Q2

REPORT INFORMATION
  Report Type: Spontaneous
  Country: US (occurrence: None)
  Receive Date: 20230523
  Receipt Date: 20230523
  Transmission Date: 20230721
  Serious: No
  Sender: FDA-Public Use
  Company Number: US-EMD Serono-9404015

PATIENT
  Age: 42 Year
  Sex: Male

DRUGS (2)
  1. MAVENCLAD [Suspect]
     Active Substance: CLADRIBINE
     Indication: Multiple sclerosis
     Dosage: YEAR ONE MONTH ONE THERAPY
     Route: 048
     Dates: start: 20221101, end: 20221105
  2. MAVENCLAD [Suspect]
     Active Substance: CLADRIBINE
     Dosage: YEAR ONE MONTH TWO THERAPY: TWO TABLETS ON DAY 1 TO 3 AND ONE TABLET ON DAYS 4 TO 5
     Route: 048
     Dates: start: 20221129, end: 20221203

REACTIONS (2)
  - Fatigue [Recovered/Resolved with Sequelae]
  - Hot flush [Recovered/Resolved with Sequelae]

NARRATIVE: CASE EVENT DATE: 20230501
